FAERS Safety Report 5364047-3 (Version None)
Quarter: 2007Q2

REPORT INFORMATION
  Report Type: 
  Country: None (occurrence: None)
  Receive Date: 20070530
  Receipt Date: 20070130
  Transmission Date: 20071010
  Serious: No
  Sender: FDA-Public Use
  Company Number: 2006PV024557

PATIENT
  Age: 41 Year
  Sex: Female
  Weight: 124.7392 kg

DRUGS (6)
  1. BYETTA [Suspect]
     Indication: DIABETES MELLITUS NON-INSULIN-DEPENDENT
     Dosage: 10 MCG; BID; SC, 5 MCG; BID; SC, 10 M CG; BID; SC, 5 MCG; BID;SC
     Route: 058
     Dates: start: 20050101, end: 20050101
  2. BYETTA [Suspect]
     Indication: DIABETES MELLITUS NON-INSULIN-DEPENDENT
     Dosage: 10 MCG; BID; SC, 5 MCG; BID; SC, 10 M CG; BID; SC, 5 MCG; BID;SC
     Route: 058
     Dates: start: 20050101, end: 20060101
  3. BYETTA [Suspect]
     Indication: DIABETES MELLITUS NON-INSULIN-DEPENDENT
     Dosage: 10 MCG; BID; SC, 5 MCG; BID; SC, 10 M CG; BID; SC, 5 MCG; BID;SC
     Route: 058
     Dates: start: 20060101, end: 20060101
  4. BYETTA [Suspect]
     Indication: DIABETES MELLITUS NON-INSULIN-DEPENDENT
     Dosage: 10 MCG; BID; SC, 5 MCG; BID; SC, 10 M CG; BID; SC, 5 MCG; BID;SC
     Route: 058
     Dates: start: 20060101
  5. METFORMIN HCL [Concomitant]
  6. MULTIPLE MIGRAINE MEDICATIONS [Concomitant]

REACTIONS (5)
  - BLOOD GLUCOSE INCREASED [None]
  - NAUSEA [None]
  - TREATMENT NONCOMPLIANCE [None]
  - VOMITING [None]
  - WEIGHT DECREASED [None]
